FAERS Safety Report 16243372 (Version 1)
Quarter: 2019Q2

REPORT INFORMATION
  Report Type: Spontaneous
  Country: US (occurrence: US)
  Receive Date: 20190322
  Receipt Date: 20190322
  Transmission Date: 20190711
  Serious: No
  Sender: FDA-Public Use
  Company Number: None

PATIENT
  Age: 70 Year
  Sex: Male

DRUGS (1)
  1. ENBREL [Suspect]
     Active Substance: ETANERCEPT
     Indication: MYOCARDITIS INFECTIOUS
     Dosage: ?          OTHER FREQUENCY:WEEKLY ;AS DIRECTED?
     Route: 058
     Dates: start: 201703

REACTIONS (1)
  - Dyspnoea [None]
